FAERS Safety Report 24731087 (Version 1)
Quarter: 2024Q4

REPORT INFORMATION
  Report Type: Spontaneous
  Country: TW (occurrence: TW)
  Receive Date: 20241213
  Receipt Date: 20241213
  Transmission Date: 20250115
  Serious: Yes (Hospitalization, Other)
  Sender: RANBAXY
  Company Number: TW-SUN PHARMACEUTICAL INDUSTRIES LTD-2024R1-484344

PATIENT
  Age: 43 Year
  Sex: Male
  Weight: 117.8 kg

DRUGS (2)
  1. METHOTREXATE [Suspect]
     Active Substance: METHOTREXATE
     Indication: Diffuse large B-cell lymphoma
     Dosage: 4000 MILLIGRAM/SQ. METER
     Route: 065
  2. SODIUM CHLORIDE [Suspect]
     Active Substance: SODIUM CHLORIDE
     Indication: Diffuse large B-cell lymphoma
     Route: 065

REACTIONS (3)
  - Acute kidney injury [Unknown]
  - Drug level increased [Unknown]
  - Toxicity to various agents [Unknown]
